FAERS Safety Report 11073870 (Version 1)
Quarter: 2015Q2

REPORT INFORMATION
  Report Type: Spontaneous
  Country: CA (occurrence: CA)
  Receive Date: 20150428
  Receipt Date: 20150428
  Transmission Date: 20150821
  Serious: Yes (Other)
  Sender: FDA-Public Use
  Company Number: CA-JNJFOC-20150413322

PATIENT
  Age: 60 Year
  Sex: Female
  Weight: 69.85 kg

DRUGS (2)
  1. TYLENOL [Suspect]
     Active Substance: ACETAMINOPHEN
     Route: 048
  2. TYLENOL [Suspect]
     Active Substance: ACETAMINOPHEN
     Indication: HEADACHE
     Dosage: 1 TABLET 3 TIMES DURING ONE DAY
     Route: 048

REACTIONS (8)
  - Drug hypersensitivity [None]
  - Erythema [Recovered/Resolved]
  - Ear swelling [Recovered/Resolved]
  - Dyspnoea [Recovered/Resolved]
  - Blister [Recovered/Resolved]
  - Memory impairment [None]
  - Peripheral swelling [Recovered/Resolved]
  - Swelling [Recovered/Resolved]
